FAERS Safety Report 8137979-0 (Version None)
Quarter: 2012Q1

REPORT INFORMATION
  Report Type: 
  Country: None (occurrence: None)
  Receive Date: 20120215
  Receipt Date: 20120209
  Transmission Date: 20120608
  Serious: Yes (Hospitalization, Other)
  Sender: FDA-Public Use
  Company Number: US-PFIZER INC-2012036287

PATIENT
  Sex: Female
  Weight: 57.143 kg

DRUGS (6)
  1. NEXIUM [Concomitant]
     Indication: GASTRIC DISORDER
     Dosage: UNK
  2. LETAIRIS [Concomitant]
     Indication: PULMONARY ARTERIAL HYPERTENSION
     Dosage: 10 MG, 1X/DAY
  3. REVATIO [Suspect]
     Indication: PULMONARY ARTERIAL HYPERTENSION
     Dosage: 20 MG, 3X/DAY
     Route: 048
  4. RAPAMUNE [Suspect]
     Indication: IMMUNOSUPPRESSANT DRUG THERAPY
     Dosage: 1 MG, 1X/DAY
     Route: 048
     Dates: end: 20111201
  5. REMODULIN [Concomitant]
     Dosage: UNK
  6. RAPAMUNE [Suspect]
     Dosage: 2 MG, 1X/DAY
     Route: 048
     Dates: start: 20111201

REACTIONS (1)
  - PNEUMONIA [None]
